FAERS Safety Report 13372351 (Version 1)
Quarter: 2017Q1

REPORT INFORMATION
  Report Type: Spontaneous
  Country: US (occurrence: US)
  Receive Date: 20170327
  Receipt Date: 20170327
  Transmission Date: 20170429
  Serious: No
  Sender: FDA-Public Use
  Company Number: US-009507513-1703USA004745

PATIENT
  Age: 87 Year
  Sex: Male

DRUGS (2)
  1. RYTARY [Concomitant]
     Active Substance: CARBIDOPA\LEVODOPA
  2. SINEMET [Suspect]
     Active Substance: CARBIDOPA\LEVODOPA
     Route: 048

REACTIONS (5)
  - Asthenia [Unknown]
  - Restless legs syndrome [Unknown]
  - Freezing phenomenon [Unknown]
  - Gait disturbance [Unknown]
  - Mobility decreased [Unknown]
